FAERS Safety Report 5225053-2 (Version None)
Quarter: 2007Q1

REPORT INFORMATION
  Report Type: 
  Country: None (occurrence: None)
  Receive Date: 20070131
  Receipt Date: 20070123
  Transmission Date: 20070707
  Serious: Yes (Other)
  Sender: FDA-Public Use
  Company Number: GB-GLAXOSMITHKLINE-B0456367A

PATIENT
  Age: 52 Week
  Sex: Male
  Weight: 3.1 kg

DRUGS (7)
  1. COMBIVIR [Suspect]
     Dates: start: 20050830, end: 20051229
  2. VIRACEPT [Suspect]
     Dosage: 2.5MG PER DAY
     Dates: start: 20050830, end: 20051229
  3. FERROUS SULFATE TAB [Concomitant]
  4. FOLIC ACID [Concomitant]
  5. FYBOGEL [Concomitant]
  6. GAVISCON [Concomitant]
     Dosage: 10ML AS REQUIRED
  7. AZATHIOPRINE [Concomitant]
     Route: 048

REACTIONS (1)
  - DEAFNESS [None]
